FAERS Safety Report 15489432 (Version 2)
Quarter: 2019Q2

REPORT INFORMATION
  Report Type: Other
  Country: CA (occurrence: CA)
  Receive Date: 20181011
  Receipt Date: 20190529
  Transmission Date: 20190711
  Serious: Yes (Hospitalization, Other)
  Sender: FDA-Public Use
  Company Number: CA-PFIZER INC-2018406477

PATIENT
  Age: 40 Year
  Sex: Male

DRUGS (9)
  1. HYDROMORPHONE HYDROCHLORIDE. [Suspect]
     Active Substance: HYDROMORPHONE HYDROCHLORIDE
     Dosage: UNK
     Route: 048
  2. PREGABALIN. [Suspect]
     Active Substance: PREGABALIN
     Dosage: 50 MG, UNK
     Route: 048
  3. PREGABALIN. [Suspect]
     Active Substance: PREGABALIN
     Indication: ANALGESIC THERAPY
     Dosage: 25 MG, 2X/DAY
     Route: 048
  4. ACETAMINOPHEN. [Suspect]
     Active Substance: ACETAMINOPHEN
     Indication: ANALGESIC THERAPY
     Dosage: 650 MG, EVERY 4 HRS
     Route: 048
  5. NORTRIPTYLINE [Suspect]
     Active Substance: NORTRIPTYLINE
     Indication: ANALGESIC THERAPY
     Dosage: 10 MG, UNK
     Route: 048
  6. HYDROMORPHONE HYDROCHLORIDE. [Suspect]
     Active Substance: HYDROMORPHONE HYDROCHLORIDE
     Indication: BREAKTHROUGH PAIN
     Dosage: 0.5 MG, UNK
     Route: 058
  7. HYDROMORPHONE [Suspect]
     Active Substance: HYDROMORPHONE
     Indication: BREAKTHROUGH PAIN
     Dosage: UNK, EVERY 4 HRS
     Route: 048
  8. TRAMADOL HYDROCHLORIDE. [Suspect]
     Active Substance: TRAMADOL HYDROCHLORIDE
     Dosage: 25 MG, AS NEEDED
  9. TRAMADOL HYDROCHLORIDE. [Suspect]
     Active Substance: TRAMADOL HYDROCHLORIDE
     Indication: ANALGESIC THERAPY
     Dosage: 25 MG, 2X/DAY EVERY 12 HOURS
     Route: 048

REACTIONS (9)
  - Vomiting [Unknown]
  - Inadequate analgesia [Unknown]
  - Drug hypersensitivity [Unknown]
  - Hallucination [Unknown]
  - Pain [Unknown]
  - Sedation [Unknown]
  - Treatment noncompliance [Unknown]
  - Nausea [Unknown]
  - Infection [Unknown]
